FAERS Safety Report 6457660-3 (Version None)
Quarter: 2009Q4

REPORT INFORMATION
  Report Type: 
  Country: None (occurrence: None)
  Receive Date: 20091125
  Receipt Date: 20091123
  Transmission Date: 20100525
  Serious: Yes (Other)
  Sender: FDA-Public Use
  Company Number: ES-TEVA-215966ISR

PATIENT
  Age: 14 Year
  Sex: Male

DRUGS (4)
  1. METHOTREXATE [Suspect]
     Indication: DEPRESSION
     Dosage: 5 G/M2 BY INFUSION FOR 24 HOURS
     Route: 041
  2. LEVOGLUTAMIDE [Interacting]
     Indication: MUCOSAL INFLAMMATION
     Route: 048
  3. ONDANSETRON [Concomitant]
  4. FLUCONAZOLE [Concomitant]

REACTIONS (2)
  - DRUG INTERACTION [None]
  - RENAL DISORDER [None]
